FAERS Safety Report 13187653 (Version 4)
Quarter: 2017Q4

REPORT INFORMATION
  Report Type: Spontaneous
  Country: ID (occurrence: ID)
  Receive Date: 20170206
  Receipt Date: 20171201
  Transmission Date: 20180320
  Serious: Yes (Life-Threatening, Hospitalization, Other)
  Sender: FDA-Public Use
  Company Number: ID-SUN PHARMACEUTICAL INDUSTRIES LTD-2017R1-132631

PATIENT
  Age: 43 Year
  Sex: Male

DRUGS (4)
  1. DOXORUBICIN [Suspect]
     Active Substance: DOXORUBICIN
     Indication: NON-HODGKIN^S LYMPHOMA STAGE II
     Dosage: FIRST CYCLE
     Route: 065
  2. PREDNISONE. [Suspect]
     Active Substance: PREDNISONE
     Indication: NON-HODGKIN^S LYMPHOMA STAGE II
     Dosage: FIRST CYCLE
     Route: 065
  3. VINCRISTINE [Suspect]
     Active Substance: VINCRISTINE
     Indication: NON-HODGKIN^S LYMPHOMA STAGE II
     Dosage: FIRST CYCLE
     Route: 065
  4. CYCLOPHOSPHAMIDE. [Suspect]
     Active Substance: CYCLOPHOSPHAMIDE
     Indication: NON-HODGKIN^S LYMPHOMA STAGE II
     Dosage: FIRST CYCLE
     Route: 065

REACTIONS (1)
  - Pneumothorax spontaneous [Recovered/Resolved]
